FAERS Safety Report 7614449-7 (Version None)
Quarter: 2011Q3

REPORT INFORMATION
  Report Type: 
  Country: None (occurrence: None)
  Receive Date: 20110708
  Receipt Date: 20110628
  Transmission Date: 20111222
  Serious: Yes (Hospitalization, Other)
  Sender: FDA-Public Use
  Company Number: US-2011-10445

PATIENT
  Age: 58 Year
  Sex: Male

DRUGS (4)
  1. FLUDARA [Suspect]
     Indication: STEM CELL TRANSPLANT
  2. BUSULFAN [Suspect]
     Indication: STEM CELL TRANSPLANT
  3. MELPHALAN HYDROCHLORIDE [Suspect]
     Indication: STEM CELL TRANSPLANT
  4. ANTI-THYMOCYTE GLOBULIN RABBIT NOS [Concomitant]

REACTIONS (7)
  - EPSTEIN-BARR VIRAEMIA [None]
  - AUTONOMIC NERVOUS SYSTEM IMBALANCE [None]
  - RESPIRATORY FAILURE [None]
  - QUADRIPLEGIA [None]
  - DIARRHOEA [None]
  - GRAFT VERSUS HOST DISEASE [None]
  - GUILLAIN-BARRE SYNDROME [None]
